FAERS Safety Report 8047253 (Version 2)
Quarter: 2012Q4

REPORT INFORMATION
  Report Type: 
  Country: AU (occurrence: AU)
  Receive Date: 20110721
  Receipt Date: 20120918
  Transmission Date: 20130627
  Serious: Yes (Other)
  Sender: FDA-Public Use
  Company Number: PHHY2011AU63448

PATIENT
  Age: 76 None
  Sex: Female
  Weight: 87 kg

DRUGS (23)
  1. ACLASTA [Suspect]
     Indication: OSTEOPOROSIS
     Dosage: 5 mg yearly
     Route: 042
     Dates: start: 2009
  2. ACLASTA [Suspect]
     Dosage: 5 mg yearly
     Route: 042
     Dates: start: 2010
  3. ACLASTA [Suspect]
     Dosage: 5 mg yearly
     Route: 042
     Dates: start: 2011
  4. ZOMETA [Suspect]
     Route: 042
  5. FOSAMAX [Concomitant]
     Indication: OSTEOPOROSIS
     Route: 048
     Dates: start: 2006, end: 2009
  6. AVANZA [Concomitant]
     Dosage: 0.5 DF, UNK
  7. ESCITALOPRAM [Concomitant]
     Dosage: 20 mg, UNK
  8. FOLATE SODIUM [Concomitant]
     Dosage: 5 mg, six days a week
  9. LACTULOSE [Concomitant]
     Dosage: 30 ml, BID
  10. DUROLAX [Concomitant]
     Dosage: 3 DF, PRN
  11. COLOXYL WITH SENNA [Concomitant]
     Dosage: 2 DF, BID
  12. MAGNESIUM [Concomitant]
  13. LESCOL [Concomitant]
     Dosage: 20 mg, nocte
  14. LEXAPRO [Concomitant]
     Dosage: 20 mg, UNK
  15. METHOTREXATE [Concomitant]
     Dates: end: 201007
  16. METHOBLASTIN [Concomitant]
     Dosage: 20 mg, each monday
  17. NEXIUM [Concomitant]
     Dosage: 40 mg, UNK
  18. PREDNISONE [Concomitant]
     Dosage: 10 mg, UNK
  19. STILNOX [Concomitant]
     Dosage: 0.5 DF, nocte
  20. SYMBICORT [Concomitant]
     Dosage: 1 puff BID
  21. WARFARIN [Concomitant]
  22. ENBREL [Concomitant]
     Dates: end: 201007
  23. MABTHERA [Concomitant]
     Dates: start: 20100916

REACTIONS (21)
  - Osteonecrosis of jaw [Not Recovered/Not Resolved]
  - Exposed bone in jaw [Unknown]
  - Erythema [Unknown]
  - Swelling [Unknown]
  - Bone lesion [Unknown]
  - Pain [Unknown]
  - Primary sequestrum [Unknown]
  - Skin exfoliation [Unknown]
  - Rheumatoid lung [Not Recovered/Not Resolved]
  - Pneumonitis [Unknown]
  - Dyspnoea [Unknown]
  - Productive cough [Unknown]
  - Hypoxia [Not Recovered/Not Resolved]
  - Interstitial lung disease [Not Recovered/Not Resolved]
  - Bronchiectasis [Not Recovered/Not Resolved]
  - Thoracic vertebral fracture [Unknown]
  - Compression fracture [Unknown]
  - Pulmonary embolism [Unknown]
  - Sleep apnoea syndrome [Unknown]
  - Neuropathy peripheral [Unknown]
  - Depression [Unknown]
